FAERS Safety Report 13384598 (Version 1)
Quarter: 2017Q1

REPORT INFORMATION
  Report Type: Spontaneous
  Country: US (occurrence: US)
  Receive Date: 20170329
  Receipt Date: 20170329
  Transmission Date: 20170429
  Serious: Yes (Life-Threatening, Hospitalization, Disabling)
  Sender: FDA-Public Use
  Company Number: None

PATIENT
  Age: 78 Year
  Sex: Male
  Weight: 74.25 kg

DRUGS (1)
  1. BCG [Suspect]
     Active Substance: BCG VACCINE
     Indication: BLADDER CANCER
     Dates: start: 20160210, end: 20160923

REACTIONS (3)
  - Lung disorder [None]
  - Dyspnoea [None]
  - Muscle spasms [None]

NARRATIVE: CASE EVENT DATE: 20160923
